FAERS Safety Report 23487167 (Version 1)
Quarter: 2024Q1

REPORT INFORMATION
  Report Type: Spontaneous
  Country: ES (occurrence: ES)
  Receive Date: 20240206
  Receipt Date: 20240206
  Transmission Date: 20240409
  Serious: Yes (Death)
  Sender: FDA-Public Use
  Company Number: None

PATIENT
  Age: 79 Year
  Sex: Male

DRUGS (6)
  1. ZOLPIDEM [Suspect]
     Active Substance: ZOLPIDEM TARTRATE
     Indication: Insomnia
     Dosage: 5.0 MG Q/24 H NOC?TEVAGEN 5 MG COMPRIMIDOS RECUBIERTOS CON PELICULA , 30 COMPRIMIDOS (BLISTER PVC...
     Route: 065
     Dates: start: 20230323
  2. OMEPRAZOLE [Concomitant]
     Active Substance: OMEPRAZOLE
     Indication: Subarachnoid haemorrhage
     Dosage: 20.0 MG A-DE?CINFA 20 MG HARD GASTRORE-RESISTANT CAPSULES EFG, 56 CAPSULES (BOTTLE)
     Route: 065
     Dates: start: 20160621
  3. ESCITALOPRAM [Suspect]
     Active Substance: ESCITALOPRAM OXALATE
     Indication: Depression
     Dosage: 15.0 MG DE?ALTER GENERICOS 15 MG EFG FILM-COATED TABLETS, 56 TABLETS
     Route: 065
     Dates: start: 20230127
  4. TAMSULOSIN HYDROCHLORIDE [Concomitant]
     Active Substance: TAMSULOSIN HYDROCHLORIDE
     Indication: Benign prostatic hyperplasia
     Dosage: 0.4 MG Q/24H?0.4 MG FILM-COATED EXTENDED-RELEASE TABLETS, 30 TABLETS
     Route: 065
     Dates: start: 20230224
  5. ATROVENT [Concomitant]
     Active Substance: IPRATROPIUM BROMIDE
     Indication: Bronchitis chronic
     Dosage: 40.0 MCG EVERY 6 HOURS?20 MICROGRAMS SOLUTION FOR INHALATION IN PRESSURE CONTAINER, 1 INHALER OF ...
     Route: 065
     Dates: start: 20230218
  6. ASPIRIN [Concomitant]
     Active Substance: ASPIRIN
     Indication: Cerebrovascular disorder
     Dosage: 100.0 MG CO?100 MG GASTRORE-RESISTANT EFG TABLETS, 30 TABLETS (PVC-ALUMINUM)
     Route: 065
     Dates: start: 20140516

REACTIONS (2)
  - Hepatocellular injury [Fatal]
  - Jaundice [Fatal]

NARRATIVE: CASE EVENT DATE: 20230615
